FAERS Safety Report 6593964-1 (Version None)
Quarter: 2010Q1

REPORT INFORMATION
  Report Type: 
  Country: None (occurrence: None)
  Receive Date: 20100222
  Receipt Date: 20100217
  Transmission Date: 20100710
  Serious: Yes (Death, Congenital Anomaly)
  Sender: FDA-Public Use
  Company Number: FR-JNJFOC-20091105672

PATIENT

DRUGS (17)
  1. GYNO DAKTARIN [Suspect]
  2. GYNO DAKTARIN [Suspect]
     Indication: DRUG EXPOSURE DURING PREGNANCY
  3. GENTALLINE [Suspect]
     Indication: DRUG EXPOSURE DURING PREGNANCY
  4. FURADANTINE [Suspect]
     Indication: DRUG EXPOSURE DURING PREGNANCY
     Route: 064
  5. AMYCOR [Suspect]
     Indication: DRUG EXPOSURE DURING PREGNANCY
     Route: 064
  6. COLIBACILLINUM [Suspect]
     Indication: DRUG EXPOSURE DURING PREGNANCY
  7. CRANBERRY EXTRACT [Suspect]
     Indication: DRUG EXPOSURE DURING PREGNANCY
  8. PHOSPHORUS [Concomitant]
     Route: 064
  9. PULSATILLA [Concomitant]
     Route: 064
  10. OPIUM [Concomitant]
     Route: 064
  11. PYROGENIUM [Concomitant]
     Route: 064
  12. PLACENTA [Concomitant]
     Route: 064
  13. ARNICA EXTRACT [Concomitant]
     Route: 064
  14. GYNDELTA [Concomitant]
     Route: 064
  15. THUYA [Concomitant]
     Route: 064
  16. IPECAC TAB [Concomitant]
     Route: 064
  17. HAMAMELIS [Concomitant]
     Route: 064

REACTIONS (9)
  - ABORTION INDUCED [None]
  - AMNIOTIC CAVITY DISORDER [None]
  - AMNIOTIC FLUID VOLUME DECREASED [None]
  - FOETAL DISORDER [None]
  - HAEMATOMA [None]
  - INFECTION [None]
  - MATERNAL DRUGS AFFECTING FOETUS [None]
  - OLIGOHYDRAMNIOS [None]
  - PULMONARY HYPOPLASIA [None]
